FAERS Safety Report 7524849-1 (Version None)
Quarter: 2011Q2

REPORT INFORMATION
  Report Type: 
  Country: None (occurrence: None)
  Receive Date: 20110606
  Receipt Date: 20110602
  Transmission Date: 20111010
  Serious: No
  Sender: FDA-Public Use
  Company Number: US-PFIZER INC-2011120282

PATIENT
  Sex: Female
  Weight: 90.703 kg

DRUGS (5)
  1. ALPRAZOLAM [Suspect]
     Indication: ANXIETY
  2. ALPRAZOLAM [Suspect]
     Indication: HYPERTENSION
     Dosage: 0.5 MG, 2X - 3X/DAY
     Route: 048
     Dates: start: 20110523, end: 20110523
  3. ALPRAZOLAM [Suspect]
     Indication: PANIC ATTACK
  4. TOPROL-XL [Concomitant]
     Indication: HYPERTENSION
     Dosage: UNK
  5. LISINOPRIL [Concomitant]
     Indication: HYPERTENSION
     Dosage: UNK

REACTIONS (3)
  - DIZZINESS [None]
  - HYPOAESTHESIA FACIAL [None]
  - HEAD INJURY [None]
